FAERS Safety Report 8304762-2 (Version None)
Quarter: 2012Q2

REPORT INFORMATION
  Report Type: 
  Country: None (occurrence: None)
  Receive Date: 20120423
  Receipt Date: 20120419
  Transmission Date: 20120825
  Serious: Yes (Death)
  Sender: FDA-Public Use
  Company Number: GR-ASTRAZENECA-2012SE23808

PATIENT
  Age: 64 Year
  Sex: Female

DRUGS (3)
  1. SALOSPIR [Concomitant]
     Indication: ACUTE CORONARY SYNDROME
  2. HEPARIN [Concomitant]
     Indication: ACUTE CORONARY SYNDROME
  3. BRILIQUE [Suspect]
     Indication: ACUTE CORONARY SYNDROME
     Route: 048
     Dates: start: 20120406, end: 20120406

REACTIONS (3)
  - SEPTIC SHOCK [None]
  - HAEMORRHAGE [None]
  - CARDIOGENIC SHOCK [None]
